FAERS Safety Report 8505669-8 (Version None)
Quarter: 2012Q3

REPORT INFORMATION
  Report Type: 
  Country: None (occurrence: None)
  Receive Date: 20120712
  Receipt Date: 20120701
  Transmission Date: 20120928
  Serious: No
  Sender: FDA-Public Use
  Company Number: US-JNJFOC-20120701475

PATIENT
  Sex: Female
  Weight: 72.58 kg

DRUGS (4)
  1. GABAPENTIN [Concomitant]
     Indication: NEURALGIA
     Route: 048
  2. PERCOCET [Concomitant]
     Indication: PAIN
     Dosage: 10/325
     Route: 048
  3. SIMVASTATIN [Concomitant]
     Indication: BLOOD CHOLESTEROL ABNORMAL
     Route: 048
  4. DURAGESIC-100 [Suspect]
     Indication: NEURALGIA
     Route: 062
     Dates: start: 20120624

REACTIONS (4)
  - DIZZINESS [None]
  - WRONG TECHNIQUE IN DRUG USAGE PROCESS [None]
  - HYPERHIDROSIS [None]
  - PRODUCT QUALITY ISSUE [None]
